FAERS Safety Report 6568258-0 (Version None)
Quarter: 2010Q1

REPORT INFORMATION
  Report Type: 
  Country: None (occurrence: None)
  Receive Date: 20100128
  Receipt Date: 20100115
  Transmission Date: 20100710
  Serious: Yes (Hospitalization)
  Sender: FDA-Public Use
  Company Number: 8044356

PATIENT
  Age: 9 Year
  Sex: Male

DRUGS (11)
  1. PREDNISOLONE [Suspect]
     Indication: PROPHYLAXIS AGAINST TRANSPLANT REJECTION
  2. ABACAVIR [Suspect]
  3. TRIMETHOPRIM + SULFAMETHOXAZOLE [Suspect]
  4. DIDANOSINE [Suspect]
  5. EFAVIRENZ [Suspect]
  6. LAMIVUDINE [Suspect]
  7. MYCOPHENOLATE MOFETIL [Suspect]
     Indication: PROPHYLAXIS AGAINST TRANSPLANT REJECTION
  8. NELFINAVIR (NELFINAVIR) [Suspect]
  9. UNKNOWN (RALTEGRAVIR) [Suspect]
     Indication: PROPHYLAXIS AGAINST TRANSPLANT REJECTION
  10. SIROLIMUS (RAPAMUNE) [Suspect]
     Indication: PROPHYLAXIS AGAINST TRANSPLANT REJECTION
  11. ZIDOVUDINE [Suspect]

REACTIONS (21)
  - ACUTE HEPATIC FAILURE [None]
  - BLOOD IMMUNOGLOBULIN E INCREASED [None]
  - CACHEXIA [None]
  - CHOLESTASIS [None]
  - DRUG INTERACTION [None]
  - DRUG TOXICITY [None]
  - HEPATIC ENCEPHALOPATHY [None]
  - HEPATITIS [None]
  - HEPATOMEGALY [None]
  - HYPERLIPIDAEMIA [None]
  - HYPERTENSION [None]
  - JAUNDICE [None]
  - LIVER TRANSPLANT [None]
  - LIVER TRANSPLANT REJECTION [None]
  - LYMPHADENOPATHY [None]
  - MYOPATHY [None]
  - PHARYNGITIS [None]
  - PYREXIA [None]
  - RASH [None]
  - RENAL IMPAIRMENT [None]
  - VOMITING [None]
